FAERS Safety Report 6138975-5 (Version None)
Quarter: 2009Q1

REPORT INFORMATION
  Report Type: 
  Country: None (occurrence: None)
  Receive Date: 20090324
  Receipt Date: 20090313
  Transmission Date: 20090719
  Serious: Yes (Other)
  Sender: FDA-Public Use
  Company Number: ISPH-2009-0084

PATIENT
  Age: 80 Year
  Sex: Female

DRUGS (5)
  1. AZASITE [Suspect]
     Indication: CONJUNCTIVITIS
     Dosage: 1 GTT, BID, OPHTHALMIC
     Route: 047
     Dates: start: 20090204, end: 20090206
  2. AZASITE [Suspect]
     Indication: CONJUNCTIVITIS
     Dosage: 1 GTT, BID, OPHTHALMIC
     Route: 047
     Dates: start: 20090217
  3. ZESTRIL [Concomitant]
  4. LUMIGAN [Concomitant]
  5. AZOPT [Concomitant]

REACTIONS (4)
  - BLOOD PRESSURE INCREASED [None]
  - EPISTAXIS [None]
  - NASAL DRYNESS [None]
  - STRESS [None]
